FAERS Safety Report 17816904 (Version 1)
Quarter: 2020Q2

REPORT INFORMATION
  Report Type: Spontaneous
  Country: US (occurrence: US)
  Receive Date: 20200522
  Receipt Date: 20200522
  Transmission Date: 20200714
  Serious: No
  Sender: FDA-Public Use
  Company Number: US-FDC LIMITED-2020RIS00183

PATIENT
  Sex: Female
  Weight: 68.93 kg

DRUGS (1)
  1. TIMOLOL MALEATE. [Suspect]
     Active Substance: TIMOLOL MALEATE
     Indication: GLAUCOMA
     Dosage: 1 GTT, 1X/DAY IN EACH EYE
     Route: 047
     Dates: start: 202002

REACTIONS (3)
  - Eyelid cyst [Not Recovered/Not Resolved]
  - Hordeolum [Not Recovered/Not Resolved]
  - Eyelid disorder [Not Recovered/Not Resolved]

NARRATIVE: CASE EVENT DATE: 2020
